FAERS Safety Report 21721581 (Version 1)
Quarter: 2022Q4

REPORT INFORMATION
  Report Type: Spontaneous
  Country: US (occurrence: US)
  Receive Date: 20221213
  Receipt Date: 20221213
  Transmission Date: 20230112
  Serious: No
  Sender: FDA-Public Use
  Company Number: US-TEVA-2022-US-2832183

PATIENT
  Age: 64 Year
  Sex: Female

DRUGS (1)
  1. LORAZEPAM [Suspect]
     Active Substance: LORAZEPAM
     Indication: Insomnia
     Dosage: STRENGTH: 0.5 MG, TAKE ONE HALF OF A 0.5 MG TABLET A DAY
     Dates: start: 20221127

REACTIONS (4)
  - Feeling abnormal [Unknown]
  - Headache [Unknown]
  - Palpitations [Unknown]
  - Off label use [Unknown]

NARRATIVE: CASE EVENT DATE: 20221128
